FAERS Safety Report 9201179 (Version 1)
Quarter: 2013Q2

REPORT INFORMATION
  Report Type: Spontaneous
  Country: US (occurrence: US)
  Receive Date: 20130401
  Receipt Date: 20130401
  Transmission Date: 20140414
  Serious: Yes (Other)
  Sender: FDA-Public Use
  Company Number: PHEH2013US006853

PATIENT
  Sex: Female

DRUGS (16)
  1. GLEEVEC [Suspect]
     Indication: CHRONIC MYELOID LEUKAEMIA
     Dosage: 400 MG, QD
  2. ACTOPLUS MET [Concomitant]
     Dosage: UNK UKN, UNK
  3. CALCITROL [Concomitant]
     Dosage: UNK UKN, UNK
  4. CYMBALTA [Concomitant]
     Dosage: UNK UKN, UNK
  5. HUMALOG [Concomitant]
     Dosage: UNK UKN, UNK
  6. HYDRALAZINE [Concomitant]
     Dosage: UNK UKN, UNK
  7. INSULIN [Concomitant]
     Dosage: UNK UKN, UNK
  8. LANTUS [Concomitant]
     Dosage: UNK UKN, UNK
  9. METOPROLOL [Concomitant]
     Dosage: UNK UKN, UNK
  10. PANTOPRAZOLE [Concomitant]
     Dosage: UNK UKN, UNK
  11. PREVACID [Concomitant]
     Dosage: UNK UKN, UNK
  12. VENLAFAXINE [Concomitant]
     Dosage: UNK UKN, UNK
  13. VICODIN [Concomitant]
     Dosage: UNK UKN, UNK
  14. VYTORIN [Concomitant]
     Dosage: UNK UKN, UNK
  15. WARFIN [Concomitant]
     Dosage: UNK UKN, UNK
  16. ZOFRAN [Concomitant]
     Dosage: UNK UKN, UNK

REACTIONS (2)
  - Cerebrovascular accident [Unknown]
  - Blindness [Unknown]
